FAERS Safety Report 4801155-7 (Version None)
Quarter: 2005Q4

REPORT INFORMATION
  Report Type: 
  Country: None (occurrence: None)
  Receive Date: 20051017
  Receipt Date: 20051005
  Transmission Date: 20060501
  Serious: Yes (Death)
  Sender: FDA-Public Use
  Company Number: CA-AMGEN-US153086

PATIENT
  Sex: Female

DRUGS (3)
  1. ARANESP [Suspect]
     Indication: ANAEMIA OF MALIGNANT DISEASE
     Route: 058
     Dates: start: 20050914, end: 20051002
  2. GEMCITABINE [Concomitant]
     Dates: start: 20050727
  3. CISPLATIN [Concomitant]
     Dates: start: 20050727

REACTIONS (3)
  - ASTHENIA [None]
  - CARDIAC ARREST [None]
  - WHITE BLOOD CELL COUNT DECREASED [None]
